FAERS Safety Report 9352756 (Version 1)
Quarter: 2013Q2

REPORT INFORMATION
  Report Type: Report from Study
  Country: CA (occurrence: CA)
  Receive Date: 20130618
  Receipt Date: 20130618
  Transmission Date: 20140414
  Serious: Yes (Hospitalization)
  Sender: FDA-Public Use
  Company Number: CA-ROCHE-1238003

PATIENT
  Sex: Female

DRUGS (3)
  1. FILGRASTIM [Suspect]
     Indication: PRODUCT USED FOR UNKNOWN INDICATION
     Dosage: 1 ML/300 MCG
     Route: 065
     Dates: start: 20130406
  2. PEGFILGRASTIM [Suspect]
     Indication: OVARIAN CANCER
     Route: 065
  3. PEGFILGRASTIM [Suspect]
     Dosage: 10MG/1.0ML
     Route: 065
     Dates: start: 20110506

REACTIONS (3)
  - Gastric disorder [Recovered/Resolved]
  - Pyrexia [Recovered/Resolved]
  - Infection [Recovered/Resolved]
